FAERS Safety Report 5483770-3 (Version None)
Quarter: 2007Q4

REPORT INFORMATION
  Report Type: 
  Country: None (occurrence: None)
  Receive Date: 20071012
  Receipt Date: 20071010
  Transmission Date: 20080405
  Serious: Yes (Death)
  Sender: FDA-Public Use
  Company Number: A0686900A

PATIENT
  Age: 85 Year
  Sex: Male

DRUGS (3)
  1. COREG [Suspect]
     Dosage: 12.5MG TWICE PER DAY
     Route: 048
  2. DIABETES MEDICATION [Concomitant]
  3. SLIDING SCALE INSULIN [Concomitant]

REACTIONS (2)
  - CARDIAC ARREST [None]
  - DEATH [None]
